FAERS Safety Report 5426046-2 (Version None)
Quarter: 2007Q3

REPORT INFORMATION
  Report Type: 
  Country: None (occurrence: None)
  Receive Date: 20070824
  Receipt Date: 20070824
  Transmission Date: 20080115
  Serious: Yes (Hospitalization)
  Sender: FDA-Public Use
  Company Number: None

PATIENT
  Age: 24 Year
  Sex: Female
  Weight: 62.1428 kg

DRUGS (1)
  1. PROPRANOLOL [Suspect]
     Indication: HYPERTENSION
     Dosage: 160MG 1 QD PO ~5-6 MO
     Route: 048

REACTIONS (2)
  - PRURITUS [None]
  - SWOLLEN TONGUE [None]
